FAERS Safety Report 18919282 (Version 1)
Quarter: 2021Q1

REPORT INFORMATION
  Report Type: Spontaneous
  Country: US (occurrence: US)
  Receive Date: 20210220
  Receipt Date: 20210220
  Transmission Date: 20210420
  Serious: Yes (Other)
  Sender: FDA-Public Use
  Company Number: US-TORRENT-00010726

PATIENT
  Sex: Female

DRUGS (4)
  1. QUETIAPINE. [Suspect]
     Active Substance: QUETIAPINE
     Indication: DYSKINESIA
     Dates: start: 201101
  2. TRAZODONE [Concomitant]
     Active Substance: TRAZODONE HYDROCHLORIDE
     Indication: DYSKINESIA
     Dosage: NIGHTLY
  3. FLUOXETINE [Suspect]
     Active Substance: FLUOXETINE HYDROCHLORIDE
     Indication: DYSKINESIA
  4. TETRABENAZINE. [Suspect]
     Active Substance: TETRABENAZINE
     Indication: DYSKINESIA
     Dosage: INCREASED TBZ DOSE

REACTIONS (6)
  - Muscle rigidity [Recovering/Resolving]
  - Fall [Unknown]
  - Parkinsonism [Recovering/Resolving]
  - Bradykinesia [Recovering/Resolving]
  - Hip fracture [Unknown]
  - Tardive dyskinesia [Recovering/Resolving]

NARRATIVE: CASE EVENT DATE: 2011
